FAERS Safety Report 20774111 (Version 1)
Quarter: 2022Q2

REPORT INFORMATION
  Report Type: Spontaneous
  Country: US (occurrence: None)
  Receive Date: 20220429
  Receipt Date: 20220429
  Transmission Date: 20220721
  Serious: No
  Sender: FDA-Public Use
  Company Number: None

PATIENT

DRUGS (1)
  1. VANCOMYCIN [Suspect]
     Active Substance: VANCOMYCIN
     Dosage: FREQUENCY : TWICE A DAY;?
     Route: 042

REACTIONS (2)
  - Product label confusion [None]
  - Intercepted product selection error [None]

NARRATIVE: CASE EVENT DATE: 20220429
